FAERS Safety Report 17707991 (Version 1)
Quarter: 2020Q2

REPORT INFORMATION
  Report Type: Spontaneous
  Country: DE (occurrence: DE)
  Receive Date: 20200425
  Receipt Date: 20200425
  Transmission Date: 20200714
  Serious: Yes (Hospitalization)
  Sender: FDA-Public Use
  Company Number: DE-ACCORD-179467

PATIENT
  Age: 14 Year
  Sex: Female
  Weight: 67 kg

DRUGS (1)
  1. SERTRALINE [Suspect]
     Active Substance: SERTRALINE HYDROCHLORIDE
     Dosage: 50MG 0-10-0-0
     Dates: start: 20191229, end: 20191229

REACTIONS (5)
  - Dizziness [Unknown]
  - Intentional overdose [Unknown]
  - Tremor [Unknown]
  - Toxicity to various agents [Unknown]
  - Abdominal pain [Unknown]

NARRATIVE: CASE EVENT DATE: 20191229
